FAERS Safety Report 5240591-4 (Version None)
Quarter: 2007Q1

REPORT INFORMATION
  Report Type: 
  Country: None (occurrence: None)
  Receive Date: 20070219
  Receipt Date: 20070206
  Transmission Date: 20070707
  Serious: Yes (Hospitalization)
  Sender: FDA-Public Use
  Company Number: US-ROCHE-477700

PATIENT
  Age: 49 Year
  Sex: Female
  Weight: 83 kg

DRUGS (10)
  1. PEGASYS [Suspect]
     Route: 058
     Dates: start: 20061006, end: 20070116
  2. RIBAVIRIN [Suspect]
     Route: 048
     Dates: start: 20061006, end: 20070116
  3. ADVAIR DISKUS 100/50 [Concomitant]
     Route: 055
  4. SPIRIVA [Concomitant]
     Route: 055
  5. ALBUTEROL [Concomitant]
     Route: 055
  6. THEOPHYLLINE [Concomitant]
     Route: 048
  7. SINGULAIR [Concomitant]
     Route: 048
  8. RITALIN [Concomitant]
     Indication: DEPRESSION
     Route: 048
  9. DOXEPINE [Concomitant]
     Indication: DEPRESSION
     Route: 048
  10. OXYGEN [Concomitant]

REACTIONS (5)
  - DYSPNOEA [None]
  - HEART RATE INCREASED [None]
  - PERICARDIAL EFFUSION [None]
  - PNEUMONIA BACTERIAL [None]
  - RASH PRURITIC [None]
